FAERS Safety Report 8082472-7 (Version None)
Quarter: 2012Q1

REPORT INFORMATION
  Report Type: 
  Country: None (occurrence: None)
  Receive Date: 20120127
  Receipt Date: 20110221
  Transmission Date: 20120608
  Serious: No
  Sender: FDA-Public Use
  Company Number: US-ABBOTT-11P-163-0706467-00

PATIENT
  Age: 48 Year
  Sex: Female

DRUGS (4)
  1. TYLENOL W/ CODEINE NO. 3 [Concomitant]
     Indication: PRODUCT USED FOR UNKNOWN INDICATION
     Dosage: AS NEEDED
  2. HUMIRA [Suspect]
     Indication: CROHN'S DISEASE
     Route: 058
     Dates: start: 20080101
  3. SINEQUAN [Concomitant]
     Indication: MIGRAINE PROPHYLAXIS
     Dosage: 0.25 MGS -AT BEDTIME
  4. XANAX [Concomitant]
     Indication: PRODUCT USED FOR UNKNOWN INDICATION
     Dosage: AS NEEDED

REACTIONS (3)
  - NASOPHARYNGITIS [None]
  - DIARRHOEA [None]
  - TOOTH FRACTURE [None]
